FAERS Safety Report 11282148 (Version 1)
Quarter: 2015Q3

REPORT INFORMATION
  Report Type: Report from Study
  Country: US (occurrence: US)
  Receive Date: 20150720
  Receipt Date: 20150720
  Transmission Date: 20151125
  Serious: No
  Sender: FDA-Public Use
  Company Number: PHEH2015US013399

PATIENT
  Age: 73 Year
  Sex: Female

DRUGS (2)
  1. TOBI [Suspect]
     Active Substance: TOBRAMYCIN
     Indication: BRONCHIECTASIS
     Dosage: UNK
     Route: 065
     Dates: start: 20130829, end: 20140224
  2. TOBI [Suspect]
     Active Substance: TOBRAMYCIN
     Indication: COUGH

REACTIONS (2)
  - Cough [Unknown]
  - Off label use [Unknown]
